FAERS Safety Report 14079893 (Version 2)
Quarter: 2018Q1

REPORT INFORMATION
  Report Type: Spontaneous
  Country: BG (occurrence: BG)
  Receive Date: 20171012
  Receipt Date: 20180313
  Transmission Date: 20180508
  Serious: Yes (Hospitalization)
  Sender: FDA-Public Use
  Company Number: BG-JNJFOC-20171010757

PATIENT
  Age: 47 Year
  Sex: Male

DRUGS (2)
  1. NEBILET [Suspect]
     Active Substance: NEBIVOLOL
     Indication: PRODUCT USED FOR UNKNOWN INDICATION
     Route: 065
  2. XARELTO [Suspect]
     Active Substance: RIVAROXABAN
     Indication: DEEP VEIN THROMBOSIS
     Route: 048
     Dates: start: 201703

REACTIONS (4)
  - Pleural effusion [Unknown]
  - Pulmonary embolism [Unknown]
  - Viral infection [Unknown]
  - Pneumonia [Unknown]

NARRATIVE: CASE EVENT DATE: 201708
